FAERS Safety Report 5837208-4 (Version None)
Quarter: 2008Q3

REPORT INFORMATION
  Report Type: 
  Country: None (occurrence: None)
  Receive Date: 20080807
  Receipt Date: 20080731
  Transmission Date: 20090109
  Serious: Yes (Other)
  Sender: FDA-Public Use
  Company Number: US-JNJFOC-20080800335

PATIENT
  Age: 48 Year
  Sex: Female
  Weight: 81.65 kg

DRUGS (3)
  1. IMODIUM MULTI-SYMPTOM RELIEF [Suspect]
     Route: 048
  2. IMODIUM MULTI-SYMPTOM RELIEF [Suspect]
     Indication: DYSPEPSIA
     Dosage: 3-4 CAPLETS/DAY FOR 6-10 YEARS
     Route: 048
  3. ANTIBIOTICS [Concomitant]
     Route: 042

REACTIONS (2)
  - INTENTIONAL DRUG MISUSE [None]
  - WEIGHT DECREASED [None]
